FAERS Safety Report 13246469 (Version 2)
Quarter: 2017Q2

REPORT INFORMATION
  Report Type: Spontaneous
  Country: US (occurrence: US)
  Receive Date: 20170217
  Receipt Date: 20170405
  Transmission Date: 20170830
  Serious: No
  Sender: FDA-Public Use
  Company Number: US-JNJFOC-20170206174

PATIENT
  Sex: Female
  Weight: 68.04 kg

DRUGS (1)
  1. TRAMADOL HYDROCHLORIDE. [Suspect]
     Active Substance: TRAMADOL HYDROCHLORIDE
     Indication: PAIN
     Dosage: THREE TO FOUR TIMES IN A DAY
     Route: 065

REACTIONS (1)
  - Therapeutic response delayed [Unknown]
